FAERS Safety Report 8307273-3 (Version None)
Quarter: 2012Q2

REPORT INFORMATION
  Report Type: 
  Country: None (occurrence: None)
  Receive Date: 20120424
  Receipt Date: 20120416
  Transmission Date: 20120825
  Serious: Yes (Other)
  Sender: FDA-Public Use
  Company Number: US-JNJFOC-20120407527

PATIENT
  Sex: Male

DRUGS (1)
  1. NUCYNTA [Suspect]
     Indication: EPIDIDYMITIS
     Dosage: EVERY 4 -6TH HOURLY
     Route: 048
     Dates: start: 20120413, end: 20120401

REACTIONS (2)
  - ABNORMAL DREAMS [None]
  - SUICIDAL IDEATION [None]
